FAERS Safety Report 9354677 (Version 2)
Quarter: 2013Q4

REPORT INFORMATION
  Report Type: Spontaneous
  Country: IT (occurrence: IT)
  Receive Date: 20130619
  Receipt Date: 20131018
  Transmission Date: 20140711
  Serious: Yes (Hospitalization)
  Sender: FDA-Public Use
  Company Number: IT-MERCK-1306ITA006192

PATIENT
  Age: 59 Year
  Sex: Male

DRUGS (3)
  1. VICTRELIS [Suspect]
     Indication: HEPATIC CIRRHOSIS
     Dosage: 2400 MG, DAILY
     Route: 048
     Dates: start: 20130515, end: 20130531
  2. RIBAVIRIN [Suspect]
     Indication: HEPATIC CIRRHOSIS
     Dosage: UNKNOWN
     Route: 048
     Dates: start: 20130216, end: 20130531
  3. PEGINTRON [Suspect]
     Indication: HEPATIC CIRRHOSIS
     Dosage: UNKNOWN
     Dates: start: 20130216, end: 20130531

REACTIONS (1)
  - Anaemia [Recovering/Resolving]
